FAERS Safety Report 5239754-3 (Version None)
Quarter: 2007Q1

REPORT INFORMATION
  Report Type: 
  Country: None (occurrence: None)
  Receive Date: 20070216
  Receipt Date: 20070205
  Transmission Date: 20070707
  Serious: Yes (Hospitalization)
  Sender: FDA-Public Use
  Company Number: US-ELI_LILLY_AND_COMPANY-US200702001022

PATIENT
  Age: 59 Year
  Sex: Female

DRUGS (3)
  1. HUMULIN 70/30 [Suspect]
     Indication: DIABETES MELLITUS
     Dosage: UNK, UNK
     Dates: start: 20050101
  2. HUMALOG [Suspect]
  3. HUMULIN 70/30 [Suspect]

REACTIONS (3)
  - INJECTION SITE PAIN [None]
  - MYOCARDIAL INFARCTION [None]
  - VASCULAR DEMENTIA [None]
